FAERS Safety Report 7964463-7 (Version None)
Quarter: 2011Q4

REPORT INFORMATION
  Report Type: 
  Country: None (occurrence: None)
  Receive Date: 20111208
  Receipt Date: 20111207
  Transmission Date: 20120403
  Serious: Yes (Other)
  Sender: FDA-Public Use
  Company Number: DE-BAYER-2011-117546

PATIENT
  Age: 45 Year
  Sex: Female

DRUGS (1)
  1. BETASERON [Suspect]
     Dosage: UNK
     Dates: start: 20110501

REACTIONS (1)
  - MYOCARDIAL INFARCTION [None]
